FAERS Safety Report 5993542-9 (Version None)
Quarter: 2008Q4

REPORT INFORMATION
  Report Type: 
  Country: None (occurrence: None)
  Receive Date: 20081212
  Receipt Date: 20081203
  Transmission Date: 20090506
  Serious: Yes (Other)
  Sender: FDA-Public Use
  Company Number: PHHY2008FR29298

PATIENT
  Sex: Female
  Weight: 60 kg

DRUGS (6)
  1. ZOLEDRONIC ACID [Suspect]
     Indication: OSTEOPOROSIS
     Dosage: UNK
     Route: 058
     Dates: start: 20081120
  2. MORPHINE [Concomitant]
  3. CORDARONE [Concomitant]
     Dosage: 200 MG DAILY.
     Route: 048
  4. COVERSYL [Concomitant]
     Dosage: 4 MG DAILY.
  5. DETENSIEL [Concomitant]
     Dosage: 10 MG DAILY
  6. INIPOMP [Concomitant]
     Dosage: 40 MG DAILY

REACTIONS (5)
  - ABDOMINAL PAIN [None]
  - INCORRECT ROUTE OF DRUG ADMINISTRATION [None]
  - INFLAMMATION [None]
  - INJECTION SITE PAIN [None]
  - PYREXIA [None]
